FAERS Safety Report 11498193 (Version 2)
Quarter: 2015Q4

REPORT INFORMATION
  Report Type: Spontaneous
  Country: DE (occurrence: DE)
  Receive Date: 20150911
  Receipt Date: 20151005
  Transmission Date: 20160304
  Serious: Yes (Hospitalization)
  Sender: FDA-Public Use
  Company Number: DE-ROCHE-1632057

PATIENT
  Age: 85 Year
  Sex: Female
  Weight: 58 kg

DRUGS (3)
  1. KADCYLA [Suspect]
     Active Substance: ADO-TRASTUZUMAB EMTANSINE
     Indication: BREAST CANCER
     Route: 042
     Dates: start: 20150317, end: 20150407
  2. ANASTROZOL [Concomitant]
     Active Substance: ANASTROZOLE
  3. HERCEPTIN [Suspect]
     Active Substance: TRASTUZUMAB
     Indication: BREAST CANCER
     Route: 065

REACTIONS (5)
  - Cardiovascular disorder [Recovered/Resolved]
  - Skin abrasion [Not Recovered/Not Resolved]
  - Contusion [Recovered/Resolved]
  - Syncope [Recovered/Resolved]
  - Fall [Unknown]

NARRATIVE: CASE EVENT DATE: 20150415
